FAERS Safety Report 5927407-5 (Version None)
Quarter: 2008Q4

REPORT INFORMATION
  Report Type: 
  Country: None (occurrence: None)
  Receive Date: 20081023
  Receipt Date: 20081020
  Transmission Date: 20090506
  Serious: Yes (Other)
  Sender: FDA-Public Use
  Company Number: DE-RANBAXY-2008RR-18788

PATIENT
  Sex: Male

DRUGS (1)
  1. BISACODYL [Suspect]
     Indication: COLONOSCOPY
     Dosage: 3 DF, UNK
     Route: 048
     Dates: start: 20081008

REACTIONS (2)
  - BURNING SENSATION [None]
  - DERMATITIS ALLERGIC [None]
